FAERS Safety Report 25274417 (Version 1)
Quarter: 2025Q2

REPORT INFORMATION
  Report Type: Spontaneous
  Country: CZ (occurrence: CZ)
  Receive Date: 20250506
  Receipt Date: 20250506
  Transmission Date: 20250717
  Serious: Yes (Death, Other)
  Sender: AMGEN
  Company Number: CZ-AMGEN-CZESP2025086528

PATIENT

DRUGS (4)
  1. ADALIMUMAB [Suspect]
     Active Substance: ADALIMUMAB
     Indication: Psoriatic arthropathy
     Route: 065
  2. APREMILAST [Suspect]
     Active Substance: APREMILAST
     Indication: Psoriatic arthropathy
     Route: 065
  3. ETANERCEPT [Suspect]
     Active Substance: ETANERCEPT
     Indication: Psoriatic arthropathy
     Route: 065
  4. USTEKINUMAB [Suspect]
     Active Substance: USTEKINUMAB
     Indication: Psoriatic arthropathy
     Route: 065

REACTIONS (12)
  - Death [Fatal]
  - Neoplasm malignant [Unknown]
  - Infection [Unknown]
  - Therapeutic product effect decreased [Unknown]
  - Drug effect less than expected [Unknown]
  - Upper respiratory tract infection [Unknown]
  - Diarrhoea [Unknown]
  - Adverse event [Unknown]
  - Urinary tract infection [Unknown]
  - Fungal infection [Unknown]
  - Psoriasis [Unknown]
  - Treatment failure [Unknown]
